FAERS Safety Report 11445257 (Version 1)
Quarter: 2015Q3

REPORT INFORMATION
  Report Type: Spontaneous
  Country: US (occurrence: US)
  Receive Date: 20150902
  Receipt Date: 20150902
  Transmission Date: 20151125
  Serious: Yes (Hospitalization)
  Sender: FDA-Public Use
  Company Number: US-BAYER-2015-409008

PATIENT
  Sex: Female

DRUGS (2)
  1. YASMIN [Suspect]
     Active Substance: DROSPIRENONE\ETHINYL ESTRADIOL
     Dosage: UNK
     Dates: start: 2004, end: 20120823
  2. YAZ [Suspect]
     Active Substance: DROSPIRENONE\ETHINYL ESTRADIOL
     Dosage: UNK
     Dates: start: 2004, end: 20120823

REACTIONS (18)
  - Dizziness [Not Recovered/Not Resolved]
  - Vertigo [Not Recovered/Not Resolved]
  - Pain [Not Recovered/Not Resolved]
  - Transverse sinus thrombosis [None]
  - Mobility decreased [Not Recovered/Not Resolved]
  - Seizure [Not Recovered/Not Resolved]
  - Cerebral haemorrhage [Not Recovered/Not Resolved]
  - Headache [Not Recovered/Not Resolved]
  - Injury [None]
  - Anxiety [Not Recovered/Not Resolved]
  - Emotional distress [Not Recovered/Not Resolved]
  - Pain [None]
  - Sensory loss [Not Recovered/Not Resolved]
  - Stress [Not Recovered/Not Resolved]
  - Superior sagittal sinus thrombosis [None]
  - Fatigue [Not Recovered/Not Resolved]
  - Frustration [Not Recovered/Not Resolved]
  - General physical health deterioration [None]
